FAERS Safety Report 9099283 (Version 2)
Quarter: 2013Q1

REPORT INFORMATION
  Report Type: Spontaneous
  Country: US (occurrence: US)
  Receive Date: 20130213
  Receipt Date: 20130318
  Transmission Date: 20140127
  Serious: Yes (Other)
  Sender: FDA-Public Use
  Company Number: US-PFIZER INC-2013054842

PATIENT
  Age: 59 Year
  Sex: Male
  Weight: 113.38 kg

DRUGS (6)
  1. MS CONTIN [Suspect]
     Indication: BACK PAIN
     Dosage: 30 MG, 3X/DAY
     Route: 065
     Dates: start: 2009
  2. MS CONTIN [Suspect]
     Indication: NECK PAIN
  3. MORPHINE SULFATE [Suspect]
     Indication: BACK PAIN
     Dosage: 30 MG, 3X/DAY
     Route: 048
     Dates: start: 20120901, end: 20121115
  4. MORPHINE SULFATE [Suspect]
     Indication: NECK PAIN
     Dosage: UNK
     Route: 048
     Dates: start: 2003, end: 2006
  5. MORPHINE SULFATE [Suspect]
     Indication: PAIN
     Dosage: 30 MG, 3X/DAY
     Route: 065
     Dates: start: 201206
  6. METFORMIN [Concomitant]
     Dosage: UNK

REACTIONS (17)
  - Suicidal ideation [Unknown]
  - Intentional self-injury [Unknown]
  - Violence-related symptom [Unknown]
  - Dyspepsia [Recovered/Resolved]
  - Chest pain [Recovered/Resolved]
  - Abdominal distension [Unknown]
  - Pain [Unknown]
  - Abdominal pain [Unknown]
  - Vomiting [Unknown]
  - Respiratory disorder [Unknown]
  - Asthenia [Unknown]
  - Gastric disorder [Recovered/Resolved]
  - White blood cell count increased [Unknown]
  - Neutrophil count increased [Unknown]
  - Disturbance in attention [Unknown]
  - Abdominal discomfort [Unknown]
  - Constipation [Unknown]
